FAERS Safety Report 8966088 (Version 2)
Quarter: 2013Q1

REPORT INFORMATION
  Report Type: Spontaneous
  Country: US (occurrence: US)
  Receive Date: 20121217
  Receipt Date: 20130108
  Transmission Date: 20140127
  Serious: Yes (Other)
  Sender: FDA-Public Use
  Company Number: US-PFIZER INC-2012315064

PATIENT
  Age: 83 Year
  Sex: Female

DRUGS (4)
  1. XALKORI [Suspect]
     Indication: LUNG NEOPLASM MALIGNANT
     Dosage: 250 MG, UNK
     Route: 048
     Dates: start: 20121022
  2. XALKORI [Suspect]
     Indication: NON-SMALL CELL LUNG CANCER STAGE IV
     Dosage: UNK
     Route: 048
     Dates: start: 20121029
  3. DECADRON [Suspect]
     Indication: NAUSEA
     Dosage: 10 MG, UNK
  4. DECADRON [Suspect]
     Indication: HEADACHE

REACTIONS (1)
  - Brain oedema [Unknown]
